FAERS Safety Report 14688903 (Version 1)
Quarter: 2018Q1

REPORT INFORMATION
  Report Type: Spontaneous
  Country: US (occurrence: US)
  Receive Date: 20180326
  Receipt Date: 20180326
  Transmission Date: 20180509
  Serious: Yes (Hospitalization)
  Sender: FDA-Public Use
  Company Number: None

PATIENT
  Age: 46 Year
  Sex: Female
  Weight: 82 kg

DRUGS (14)
  1. ALPRAZOLAM. [Concomitant]
     Active Substance: ALPRAZOLAM
  2. ZOSYN [Concomitant]
     Active Substance: PIPERACILLIN SODIUM\TAZOBACTAM SODIUM
  3. DEXTROSE. [Concomitant]
     Active Substance: DEXTROSE
  4. MORPHINE [Concomitant]
     Active Substance: MORPHINE
  5. IPRATROPIUM-ALBUTEROL [Concomitant]
     Active Substance: ALBUTEROL\IPRATROPIUM
  6. NICOTINE. [Concomitant]
     Active Substance: NICOTINE
  7. HARVONI [Suspect]
     Active Substance: LEDIPASVIR\SOFOSBUVIR
     Indication: HEPATITIS C
     Dosage: DOSE - 90-400?FREQUENCY 1X/DAILY
     Route: 048
     Dates: start: 20170608, end: 20170831
  8. ACETAMINOPHEN. [Concomitant]
     Active Substance: ACETAMINOPHEN
  9. GLUCOSE [Concomitant]
     Active Substance: DEXTROSE
  10. DIPHENHYDRAMINE. [Concomitant]
     Active Substance: DIPHENHYDRAMINE
  11. ONDANSETRON [Concomitant]
     Active Substance: ONDANSETRON
  12. ROXICODONE [Concomitant]
     Active Substance: OXYCODONE HYDROCHLORIDE
  13. ENOXAPARIN [Concomitant]
     Active Substance: ENOXAPARIN
  14. PANTOPRAZOLE [Concomitant]
     Active Substance: PANTOPRAZOLE

REACTIONS (1)
  - Colitis [None]

NARRATIVE: CASE EVENT DATE: 20171003
